FAERS Safety Report 14373142 (Version 1)
Quarter: 2018Q1

REPORT INFORMATION
  Report Type: Spontaneous
  Country: US (occurrence: US)
  Receive Date: 20180110
  Receipt Date: 20180110
  Transmission Date: 20180509
  Serious: Yes (Death, Hospitalization, Other)
  Sender: FDA-Public Use
  Company Number: US-MYLANLABS-2018M1000315

PATIENT
  Age: 61 Year
  Sex: Male

DRUGS (2)
  1. LACTULOSE. [Concomitant]
     Active Substance: LACTULOSE
     Indication: METABOLIC ENCEPHALOPATHY
     Dosage: UNK
     Route: 065
  2. MYCOPHENOLATE MOFETIL. [Suspect]
     Active Substance: MYCOPHENOLATE MOFETIL
     Indication: IMMUNOSUPPRESSANT DRUG THERAPY
     Dosage: UNK
     Route: 065

REACTIONS (6)
  - Cardiac tamponade [Fatal]
  - Septic shock [Fatal]
  - Septic embolus [Fatal]
  - Pericarditis infective [Fatal]
  - Endocarditis [Fatal]
  - Aspergillus infection [Fatal]
